FAERS Safety Report 15579012 (Version 1)
Quarter: 2018Q4

REPORT INFORMATION
  Report Type: Spontaneous
  Country: US (occurrence: US)
  Receive Date: 20181029
  Receipt Date: 20181029
  Transmission Date: 20190205
  Serious: Yes (Disabling, Other)
  Sender: FDA-Public Use
  Company Number: None

PATIENT
  Age: 77 Year
  Sex: Female
  Weight: 78.02 kg

DRUGS (9)
  1. DULOXETINE. [Concomitant]
     Active Substance: DULOXETINE
  2. EYLEA [Suspect]
     Active Substance: AFLIBERCEPT
     Indication: AGE-RELATED MACULAR DEGENERATION
     Route: 031
     Dates: start: 20180226, end: 20180710
  3. TYLENOL [Concomitant]
     Active Substance: ACETAMINOPHEN
  4. APAP (PARACETAMOL) [Concomitant]
  5. ROBAXIN [Concomitant]
     Active Substance: METHOCARBAMOL
  6. ROBAXIN [Concomitant]
     Active Substance: METHOCARBAMOL
  7. RANITIDINE. [Concomitant]
     Active Substance: RANITIDINE
  8. ZYRTEC [Concomitant]
     Active Substance: CETIRIZINE HYDROCHLORIDE
  9. LEVOTHYROXINE (LEVOTHYROXINE) [Concomitant]
     Active Substance: LEVOTHYROXINE

REACTIONS (18)
  - Drug hypersensitivity [None]
  - Foreign body sensation in eyes [None]
  - Choking [None]
  - Photopsia [None]
  - Dysgraphia [None]
  - Allergic sinusitis [None]
  - Drug ineffective [None]
  - Angina pectoris [None]
  - Eye irritation [None]
  - Overdose [None]
  - Cough [None]
  - Eye disorder [None]
  - Eye pain [None]
  - Chromatopsia [None]
  - Lacrimation increased [None]
  - Vision blurred [None]
  - Visual impairment [None]
  - Retinal detachment [None]

NARRATIVE: CASE EVENT DATE: 20180710
